FAERS Safety Report 21722726 (Version 2)
Quarter: 2022Q4

REPORT INFORMATION
  Report Type: Spontaneous
  Country: CA (occurrence: CA)
  Receive Date: 20221213
  Receipt Date: 20221230
  Transmission Date: 20230113
  Serious: No
  Sender: FDA-Public Use
  Company Number: CA-PFIZER INC-202201364582

PATIENT
  Age: 63 Year
  Sex: Male

DRUGS (2)
  1. FRAGMIN [Suspect]
     Active Substance: DALTEPARIN SODIUM
     Dosage: 0.72 ML
  2. FRAGMIN [Suspect]
     Active Substance: DALTEPARIN SODIUM
     Dosage: 0.2 ML A YEAR AGO, HE WAS PRESCRIBED A DOSE OF 0.2ML

REACTIONS (3)
  - Device difficult to use [Unknown]
  - Device issue [Unknown]
  - Injection site bruising [Unknown]
